FAERS Safety Report 8355407-7 (Version None)
Quarter: 2012Q2

REPORT INFORMATION
  Report Type: 
  Country: None (occurrence: None)
  Receive Date: 20120511
  Receipt Date: 20120508
  Transmission Date: 20120825
  Serious: Yes (Other)
  Sender: FDA-Public Use
  Company Number: CA-GILEAD-2012-0054804

PATIENT
  Age: 61 Year
  Sex: Male

DRUGS (7)
  1. TRUVADA [Suspect]
     Indication: HIV INFECTION
     Dosage: UNK
     Dates: start: 20040101
  2. FOLIC ACID [Concomitant]
     Indication: THALASSAEMIA BETA
  3. EZETIMIBE [Concomitant]
     Indication: DYSLIPIDAEMIA
  4. CRESTOR [Concomitant]
     Indication: DYSLIPIDAEMIA
  5. HYTRIN [Concomitant]
     Indication: BENIGN PROSTATIC HYPERPLASIA
  6. ASPIRIN [Concomitant]
  7. VIRAMUNE [Concomitant]
     Indication: HIV INFECTION
     Dosage: UNK
     Dates: start: 20040101

REACTIONS (2)
  - RENAL FAILURE CHRONIC [None]
  - OSTEOPOROSIS [None]
